FAERS Safety Report 11739733 (Version 2)
Quarter: 2016Q2

REPORT INFORMATION
  Report Type: Spontaneous
  Country: FR (occurrence: FR)
  Receive Date: 20151113
  Receipt Date: 20160505
  Transmission Date: 20160815
  Serious: Yes (Hospitalization)
  Sender: FDA-Public Use
  Company Number: FR-009507513-1511FRA007475

PATIENT
  Age: 83 Year
  Sex: Male

DRUGS (20)
  1. JANUMET [Suspect]
     Active Substance: METFORMIN HYDROCHLORIDE\SITAGLIPTIN PHOSPHATE
     Dosage: 1 DF IN THE MORNING AND 1 DF IN THE EVENING
     Route: 048
     Dates: end: 20150910
  2. SPECIAFOLDINE [Suspect]
     Active Substance: FOLIC ACID
     Dosage: 1 DF, IN THE MORNING
     Route: 048
     Dates: end: 20150924
  3. ACETAMINOPHEN. [Concomitant]
     Active Substance: ACETAMINOPHEN
     Dosage: UNK
  4. AMOXICILLIN. [Suspect]
     Active Substance: AMOXICILLIN
     Dosage: TOTAL DAILY DOSE: 3000 MG (500 MG, 6 PER DAY)
     Route: 048
     Dates: start: 20150818, end: 20150825
  5. AUGMENTIN [Suspect]
     Active Substance: AMOXICILLIN\CLAVULANATE POTASSIUM
     Dosage: TOTAL DAILY DOSE: 3G (1G, 3 PER DAY)
     Route: 048
     Dates: start: 20150917, end: 20150921
  6. FENTANYL. [Concomitant]
     Active Substance: FENTANYL
     Dosage: UNK
  7. PYOSTACINE [Concomitant]
     Active Substance: PRISTINAMYCIN
     Dosage: UNK
  8. ULTRA LEVURE [Concomitant]
     Active Substance: SACCHAROMYCES CEREVISIAE
     Dosage: UNK
  9. NOVO-NORM [Suspect]
     Active Substance: REPAGLINIDE
     Dosage: 1 DF, QD
     Route: 048
     Dates: start: 20150729, end: 20150910
  10. ADANCOR [Concomitant]
     Active Substance: NICORANDIL
     Dosage: UNK
  11. SOTALOL HYDROCHLORIDE. [Concomitant]
     Active Substance: SOTALOL HYDROCHLORIDE
     Dosage: UNK
  12. SIMVASTATIN. [Concomitant]
     Active Substance: SIMVASTATIN
     Dosage: UNK
  13. TRIATEC (RAMIPRIL) [Concomitant]
     Active Substance: RAMIPRIL
     Dosage: UNK
  14. KARDEGIC [Concomitant]
     Active Substance: ASPIRIN LYSINE
     Dosage: UNK
  15. FUROSEMIDE. [Concomitant]
     Active Substance: FUROSEMIDE
     Dosage: UNK
  16. TRANSIPEG [Concomitant]
     Active Substance: POLYETHYLENE GLYCOL 3350
     Dosage: UNK
  17. LYRICA [Concomitant]
     Active Substance: PREGABALIN
     Dosage: UNK
  18. DIAMICRON [Suspect]
     Active Substance: GLICLAZIDE
     Dosage: 1 DF, IN THE MORNING
     Route: 048
     Dates: end: 20150910
  19. INEXIUM (ESOMEPRAZOLE SODIUM) [Concomitant]
     Active Substance: ESOMEPRAZOLE SODIUM
     Dosage: UNK
  20. LERCANIDIPINE HYDROCHLORIDE [Concomitant]
     Active Substance: LERCANIDIPINE HYDROCHLORIDE
     Dosage: UNK

REACTIONS (4)
  - Pyrexia [Recovered/Resolved]
  - Eosinophilia [Unknown]
  - Eosinophilia [Recovered/Resolved]
  - Rash erythematous [Recovered/Resolved]

NARRATIVE: CASE EVENT DATE: 20150917
